FAERS Safety Report 11805059 (Version 2)
Quarter: 2016Q1

REPORT INFORMATION
  Report Type: Report from Study
  Country: GB (occurrence: GB)
  Receive Date: 20151205
  Receipt Date: 20160125
  Transmission Date: 20160525
  Serious: Yes (Other)
  Sender: FDA-Public Use
  Company Number: PHFR2015GB009205

PATIENT
  Age: 23 Year
  Sex: Male

DRUGS (3)
  1. BLINDED NO TREATMENT RECEIVED [Suspect]
     Active Substance: INVESTIGATIONAL PRODUCT
     Indication: ANGIOMYOLIPOMA
     Dosage: CODE NOT BROKEN
     Route: 048
  2. BLINDED PLACEBO [Suspect]
     Active Substance: INVESTIGATIONAL PRODUCT
     Indication: ANGIOMYOLIPOMA
     Dosage: CODE NOT BROKEN
     Route: 048
  3. AFINITOR [Suspect]
     Active Substance: EVEROLIMUS
     Indication: ANGIOMYOLIPOMA
     Dosage: CODE NOT BROKEN
     Route: 048

REACTIONS (3)
  - Urinary tract infection [Unknown]
  - Large intestine polyp [Unknown]
  - Herpes zoster [Unknown]

NARRATIVE: CASE EVENT DATE: 201401
